FAERS Safety Report 9275872 (Version 2)
Quarter: 2013Q3

REPORT INFORMATION
  Report Type: Report from Study
  Country: US (occurrence: US)
  Receive Date: 20130507
  Receipt Date: 20130806
  Transmission Date: 20140515
  Serious: Yes (Other)
  Sender: FDA-Public Use
  Company Number: US-ROCHE-1219128

PATIENT
  Age: 60 Year
  Sex: Female
  Weight: 94.89 kg

DRUGS (2)
  1. AVASTIN [Suspect]
     Indication: COLORECTAL CANCER
     Route: 042
     Dates: start: 20130101
  2. 5-FLUOROURACIL [Concomitant]
     Indication: COLORECTAL CANCER METASTATIC

REACTIONS (15)
  - Visual impairment [Not Recovered/Not Resolved]
  - Vision blurred [Unknown]
  - Temperature intolerance [Recovering/Resolving]
  - Epistaxis [Not Recovered/Not Resolved]
  - Skin exfoliation [Not Recovered/Not Resolved]
  - Dry skin [Not Recovered/Not Resolved]
  - Paraesthesia oral [Recovering/Resolving]
  - Lip blister [Recovering/Resolving]
  - Paraesthesia [Recovering/Resolving]
  - Blister [Recovering/Resolving]
  - White blood cell count decreased [Not Recovered/Not Resolved]
  - Bone marrow disorder [Not Recovered/Not Resolved]
  - Stomatitis [Not Recovered/Not Resolved]
  - Nausea [Not Recovered/Not Resolved]
  - Asthenia [Not Recovered/Not Resolved]
